FAERS Safety Report 17440913 (Version 3)
Quarter: 2020Q1

REPORT INFORMATION
  Report Type: Report from Study
  Country: US (occurrence: US)
  Receive Date: 20200220
  Receipt Date: 20200304
  Transmission Date: 20200409
  Serious: No
  Sender: FDA-Public Use
  Company Number: NVSC2020US048040

PATIENT
  Age: 46 Year
  Sex: Female

DRUGS (1)
  1. GILENYA [Suspect]
     Active Substance: FINGOLIMOD HYDROCHLORIDE
     Indication: MULTIPLE SCLEROSIS
     Dosage: 0.5 MG, QD
     Route: 048
     Dates: start: 20200217

REACTIONS (12)
  - Central nervous system lesion [Unknown]
  - Balance disorder [Unknown]
  - Limb discomfort [Unknown]
  - Headache [Unknown]
  - Gait disturbance [Unknown]
  - Condition aggravated [Unknown]
  - Epistaxis [Unknown]
  - Cough [Unknown]
  - Back pain [Unknown]
  - Memory impairment [Unknown]
  - Nasopharyngitis [Unknown]
  - Influenza [Unknown]

NARRATIVE: CASE EVENT DATE: 20200218
